FAERS Safety Report 23298090 (Version 5)
Quarter: 2024Q1

REPORT INFORMATION
  Report Type: Other
  Country: CA (occurrence: None)
  Receive Date: 20231214
  Receipt Date: 20240319
  Transmission Date: 20240410
  Serious: No
  Sender: FDA-Public Use
  Company Number: CA-ROCHE-3402716

PATIENT
  Age: 52 Year
  Sex: Male

DRUGS (9)
  1. OCREVUS [Suspect]
     Active Substance: OCRELIZUMAB
     Indication: Relapsing-remitting multiple sclerosis
     Dosage: MORE DOSAGE INFORMATION IS 300 MG AT DAY 0 AND 14, THEN 600 MG EVERY 6 MONTHS
     Route: 042
     Dates: start: 20230728
  2. PANTOPRAZOLE [Concomitant]
     Active Substance: PANTOPRAZOLE
  3. MODAFINIL [Concomitant]
     Active Substance: MODAFINIL
  4. BACLOFEN [Concomitant]
     Active Substance: BACLOFEN
     Indication: Tremor
  5. AMANTADINE [Concomitant]
     Active Substance: AMANTADINE
     Indication: Fatigue
  6. PANTOPRAZOLE MAGNESIUM [Concomitant]
     Active Substance: PANTOPRAZOLE MAGNESIUM
     Indication: Dyspepsia
  7. TYLENOL [Concomitant]
     Active Substance: ACETAMINOPHEN
  8. VYVANSE [Concomitant]
     Active Substance: LISDEXAMFETAMINE DIMESYLATE
  9. ZOPICLONE [Concomitant]
     Active Substance: ZOPICLONE

REACTIONS (16)
  - Muscle spasms [Not Recovered/Not Resolved]
  - Cognitive disorder [Not Recovered/Not Resolved]
  - Visual acuity reduced [Recovered/Resolved]
  - Muscular weakness [Not Recovered/Not Resolved]
  - COVID-19 [Unknown]
  - Urinary retention [Unknown]
  - Cerebral disorder [Unknown]
  - Pain in extremity [Unknown]
  - Muscle twitching [Unknown]
  - Fatigue [Not Recovered/Not Resolved]
  - Nervous system disorder [Not Recovered/Not Resolved]
  - Dyskinesia [Not Recovered/Not Resolved]
  - Muscle twitching [Not Recovered/Not Resolved]
  - Eye pain [Not Recovered/Not Resolved]
  - Brain fog [Not Recovered/Not Resolved]
  - Multiple sclerosis [Not Recovered/Not Resolved]

NARRATIVE: CASE EVENT DATE: 20240221
